FAERS Safety Report 18337366 (Version 1)
Quarter: 2020Q4

REPORT INFORMATION
  Report Type: Spontaneous
  Country: AT (occurrence: AT)
  Receive Date: 20201002
  Receipt Date: 20201002
  Transmission Date: 20210113
  Serious: Yes (Other)
  Sender: FDA-Public Use
  Company Number: AT-HIKMA PHARMACEUTICALS USA INC.-AT-H14001-20-04498

PATIENT
  Age: 56 Year
  Sex: Female

DRUGS (10)
  1. VANCOMYCIN [Suspect]
     Active Substance: VANCOMYCIN
     Indication: PNEUMONIA
     Dosage: UNKNOWN
     Route: 065
  2. PYRIDOSTIGMINE [Concomitant]
     Active Substance: PYRIDOSTIGMINE
     Indication: MYASTHENIA GRAVIS
     Route: 065
  3. CEFEPIME [Concomitant]
     Active Substance: CEFEPIME HYDROCHLORIDE
     Indication: PNEUMONIA
     Dosage: UNKNOWN
     Route: 065
  4. AZITHROMYCIN ANHYDROUS. [Concomitant]
     Active Substance: AZITHROMYCIN ANHYDROUS
     Indication: COVID-19
  5. PREDNISONE. [Concomitant]
     Active Substance: PREDNISONE
     Indication: MYASTHENIA GRAVIS
     Route: 065
  6. CHLOROQUINE. [Concomitant]
     Active Substance: CHLOROQUINE
     Indication: MYASTHENIA GRAVIS
     Dosage: 2 DAYS EVERY 2 WEEKS
     Route: 065
  7. CEFEPIME [Concomitant]
     Active Substance: CEFEPIME HYDROCHLORIDE
     Indication: COVID-19
  8. AZITHROMYCIN ANHYDROUS. [Concomitant]
     Active Substance: AZITHROMYCIN ANHYDROUS
     Indication: PNEUMONIA
     Dosage: UNKNOWN
     Route: 065
  9. VANCOMYCIN [Suspect]
     Active Substance: VANCOMYCIN
     Indication: COVID-19
  10. IMMUNOGLOBULIN [Concomitant]
     Indication: MYASTHENIA GRAVIS
     Dosage: 2 DAYS EVERY 2 WEEKS
     Route: 042

REACTIONS (2)
  - Myasthenia gravis crisis [Unknown]
  - Respiratory failure [Unknown]
